FAERS Safety Report 7545184-1 (Version None)
Quarter: 2011Q2

REPORT INFORMATION
  Report Type: 
  Country: None (occurrence: None)
  Receive Date: 20110531
  Receipt Date: 20110523
  Transmission Date: 20111010
  Serious: Yes (Other)
  Sender: FDA-Public Use
  Company Number: 2011028635

PATIENT
  Age: 11 Year
  Sex: Female
  Weight: 37.6486 kg

DRUGS (10)
  1. HIZENTRA [Suspect]
     Indication: COMBINED IMMUNODEFICIENCY
     Dosage: 4G 1X/WEEK, 20 ML WEEKLY IN 2 SITES OVER 1 HOUR 21 MIN, SUBCUTANEOUS
     Route: 058
     Dates: start: 20110427
  2. TENEX [Concomitant]
  3. MULTIVITAMIN 9DAILY MULTIVITAMIN) [Concomitant]
  4. BACTRIM [Concomitant]
  5. TRAZODONE HCL [Concomitant]
  6. ZOFRAN [Concomitant]
  7. ZOLOFT [Concomitant]
  8. DDAVP [Concomitant]
  9. AUGMENTIN '125' [Concomitant]
  10. HEPARIN [Concomitant]

REACTIONS (2)
  - SINUSITIS [None]
  - RESPIRATORY TRACT INFECTION [None]
